FAERS Safety Report 8488541-1 (Version None)
Quarter: 2012Q3

REPORT INFORMATION
  Report Type: 
  Country: None (occurrence: None)
  Receive Date: 20120705
  Receipt Date: 20120629
  Transmission Date: 20120928
  Serious: Yes (Death)
  Sender: FDA-Public Use
  Company Number: US-PFIZER INC-2012157793

PATIENT

DRUGS (2)
  1. ALDACTONE [Suspect]
     Dosage: UNK
  2. ACCUPRIL [Suspect]
     Dosage: UNK

REACTIONS (1)
  - DEATH [None]
